FAERS Safety Report 4650456-4 (Version None)
Quarter: 2005Q2

REPORT INFORMATION
  Report Type: 
  Country: None (occurrence: None)
  Receive Date: 20050429
  Receipt Date: 20050419
  Transmission Date: 20051028
  Serious: Yes (Other)
  Sender: FDA-Public Use
  Company Number: 2005-04-1842

PATIENT
  Age: 58 Year
  Sex: Female

DRUGS (3)
  1. DIPROSONE (BETAMETHASONE DIPROPIONATE) TOPICALS ^LIKE DIPROLENE OINTME [Suspect]
     Indication: PUSTULAR PSORIASIS
     Dosage: 1 APP BID TOP-DERM
     Dates: start: 20031015
  2. NOVORAPID (HUMAN INSUILIN) [Concomitant]
  3. INSULATARD [Concomitant]

REACTIONS (2)
  - BLOOD GLUCOSE INCREASED [None]
  - DIABETES MELLITUS [None]
